FAERS Safety Report 23742807 (Version 2)
Quarter: 2024Q2

REPORT INFORMATION
  Report Type: Report from Study
  Country: CH (occurrence: CH)
  Receive Date: 20240415
  Receipt Date: 20240503
  Transmission Date: 20240715
  Serious: Yes (Other)
  Sender: FDA-Public Use
  Company Number: CH-TAKEDA-2024TUS034029

PATIENT
  Age: 47 Year
  Sex: Female

DRUGS (1)
  1. HUMAN IMMUNOGLOBULIN G [Suspect]
     Active Substance: HUMAN IMMUNOGLOBULIN G
     Indication: Selective IgG subclass deficiency
     Dosage: 8 GRAM, 1/WEEK
     Route: 058
     Dates: start: 20210614

REACTIONS (1)
  - Chronic inflammatory demyelinating polyradiculoneuropathy [Unknown]

NARRATIVE: CASE EVENT DATE: 20240301
